FAERS Safety Report 8277426-1 (Version None)
Quarter: 2012Q2

REPORT INFORMATION
  Report Type: 
  Country: None (occurrence: None)
  Receive Date: 20120412
  Receipt Date: 20120406
  Transmission Date: 20120825
  Serious: Yes (Death)
  Sender: FDA-Public Use
  Company Number: HR-PFIZER INC-2012090173

PATIENT
  Age: 79 Year
  Sex: Female
  Weight: 68 kg

DRUGS (4)
  1. NOVOMIX [Concomitant]
     Dosage: UNK
     Dates: start: 20060101
  2. FUROSEMIDE [Concomitant]
     Dosage: UNK
     Dates: start: 20040101
  3. LANITOP [Concomitant]
     Dosage: UNK
     Dates: start: 20040101
  4. MORPHINE SULFATE [Suspect]
     Indication: PAIN
     Dosage: 10 MG, DAILY
     Route: 048
     Dates: start: 20111205, end: 20111207

REACTIONS (1)
  - DEATH [None]
